FAERS Safety Report 6701169-6 (Version None)
Quarter: 2010Q2

REPORT INFORMATION
  Report Type: 
  Country: None (occurrence: None)
  Receive Date: 20100428
  Receipt Date: 20100428
  Transmission Date: 20101027
  Serious: Yes (Hospitalization)
  Sender: FDA-Public Use
  Company Number: None

PATIENT
  Age: 54 Year
  Sex: Female
  Weight: 56.6996 kg

DRUGS (6)
  1. ALENDRONATE SODIUM [Suspect]
     Indication: OSTEOPENIA
     Dosage: 1 TABLET WEEKLY PO
     Route: 048
     Dates: start: 20090714, end: 20100318
  2. ALENDRONATE SODIUM [Suspect]
     Indication: POSTMENOPAUSE
     Dosage: 1 TABLET WEEKLY PO
     Route: 048
     Dates: start: 20090714, end: 20100318
  3. ZOFRAN [Concomitant]
  4. ATIVAN [Concomitant]
  5. DEMEROL [Concomitant]
  6. NEXIUM [Concomitant]

REACTIONS (1)
  - PANCREATITIS [None]
